FAERS Safety Report 15390811 (Version 1)
Quarter: 2018Q3

REPORT INFORMATION
  Report Type: Spontaneous
  Country: US (occurrence: US)
  Receive Date: 20180910
  Receipt Date: 20180910
  Transmission Date: 20181010
  Serious: No
  Sender: FDA-Public Use
  Company Number: None

PATIENT
  Age: 56 Year
  Sex: Male
  Weight: 76.5 kg

DRUGS (7)
  1. MELOXICAM. [Concomitant]
     Active Substance: MELOXICAM
  2. SAW PALME [Concomitant]
  3. TRAZONDON HCL TABS 50MG [Suspect]
     Active Substance: TRAZODONE HYDROCHLORIDE
     Indication: INSOMNIA
     Dosage: ?          QUANTITY:1 TABLET(S);?
     Route: 048
     Dates: start: 20180904, end: 20180906
  4. GLUCOSAMINE?CHONDROITIN DS [Concomitant]
  5. CRANBERRY EXTRACT [Concomitant]
     Active Substance: CRANBERRY JUICE
  6. ALFUZOSIN ER [Concomitant]
  7. CENTRUM SILVER [Concomitant]
     Active Substance: MINERALS\VITAMINS

REACTIONS (4)
  - Heart rate increased [None]
  - Therapy cessation [None]
  - Nasal congestion [None]
  - Insomnia [None]

NARRATIVE: CASE EVENT DATE: 20180904
